FAERS Safety Report 4999884-8 (Version None)
Quarter: 2006Q2

REPORT INFORMATION
  Report Type: 
  Country: None (occurrence: None)
  Receive Date: 20060509
  Receipt Date: 20060424
  Transmission Date: 20061013
  Serious: Yes (Hospitalization)
  Sender: FDA-Public Use
  Company Number: S06-FRA-01752-01

PATIENT
  Age: 78 Year
  Sex: Male

DRUGS (5)
  1. SEROPLEX (ESCITALOPRAM) [Suspect]
     Dosage: 1 UNITS QD PO
     Route: 048
     Dates: end: 20060315
  2. ACETAMINOPHEN [Suspect]
     Dosage: 500 MG QD PO
     Route: 048
     Dates: end: 20060315
  3. HEXAPNEUMINE TABLETS [Suspect]
     Dates: end: 20060315
  4. RAMIPRIL [Suspect]
     Dosage: 5 MG QD PO
     Route: 048
     Dates: end: 20060315
  5. METFORMIN [Suspect]
     Dosage: 850 MG TID PO
     Route: 048
     Dates: end: 20060313

REACTIONS (4)
  - BRONCHIAL OBSTRUCTION [None]
  - LACTIC ACIDOSIS [None]
  - OXYGEN SATURATION DECREASED [None]
  - RESPIRATORY DISTRESS [None]
